FAERS Safety Report 8811003 (Version 1)
Quarter: 2012Q4

REPORT INFORMATION
  Report Type: 
  Country: US (occurrence: US)
  Receive Date: 20120927
  Receipt Date: 20120927
  Transmission Date: 20130627
  Serious: Yes (Hospitalization, Other)
  Sender: FDA-Public Use
  Company Number: US-SANOFI-AVENTIS-2012SA068509

PATIENT
  Age: 73 Year
  Sex: Male
  Weight: 82 kg

DRUGS (10)
  1. PLAVIX [Suspect]
     Indication: STROKE
     Route: 048
  2. ASPIRIN [Suspect]
     Route: 065
  3. ESCITALOPRAM [Concomitant]
  4. XANAX [Concomitant]
  5. HYDROCODONE [Concomitant]
  6. FUROSEMIDE [Concomitant]
  7. BENICAR [Concomitant]
  8. ARICEPT [Concomitant]
  9. NAMENDA [Concomitant]
  10. SIMVASTATIN [Concomitant]

REACTIONS (5)
  - Renal impairment [Not Recovered/Not Resolved]
  - Gastrostomy tube insertion [Not Recovered/Not Resolved]
  - Aggression [Not Recovered/Not Resolved]
  - Pulmonary oedema [Unknown]
  - Cerebrovascular accident [Not Recovered/Not Resolved]
